FAERS Safety Report 5488136-8 (Version None)
Quarter: 2007Q4

REPORT INFORMATION
  Report Type: 
  Country: None (occurrence: None)
  Receive Date: 20071017
  Receipt Date: 20071015
  Transmission Date: 20080405
  Serious: No
  Sender: FDA-Public Use
  Company Number: CA-ASTRAZENECA-2006UW05055

PATIENT
  Age: 31 Year
  Sex: Female

DRUGS (4)
  1. SEROQUEL [Suspect]
     Indication: INSOMNIA
     Route: 048
     Dates: start: 20060131
  2. SEROQUEL [Suspect]
     Indication: AFFECTIVE DISORDER
     Route: 048
     Dates: start: 20060131
  3. SEROQUEL [Suspect]
     Route: 048
     Dates: start: 20050506
  4. SEROQUEL [Suspect]
     Route: 048
     Dates: start: 20050506

REACTIONS (2)
  - DIABETES MELLITUS [None]
  - DRUG EXPOSURE DURING PREGNANCY [None]
